FAERS Safety Report 8863073 (Version 1)
Quarter: 2012Q4

REPORT INFORMATION
  Report Type: 
  Country: US (occurrence: US)
  Receive Date: 20121026
  Receipt Date: 20121026
  Transmission Date: 20130627
  Serious: Yes (Death, Hospitalization)
  Sender: FDA-Public Use
  Company Number: US-RANBAXY-2012US-61241

PATIENT
  Age: 54 Year
  Sex: Female

DRUGS (1)
  1. ACETAMINOPHEN [Suspect]
     Indication: PRODUCT USED FOR UNKNOWN INDICATION
     Route: 065

REACTIONS (8)
  - Multi-organ failure [Fatal]
  - Drug abuse [Unknown]
  - Metabolic acidosis [Not Recovered/Not Resolved]
  - Malnutrition [None]
  - Hypotension [None]
  - Hyperammonaemia [None]
  - Transaminases increased [None]
  - Blood lactic acid increased [None]
